FAERS Safety Report 13994179 (Version 1)
Quarter: 2017Q3

REPORT INFORMATION
  Report Type: Spontaneous
  Country: US (occurrence: US)
  Receive Date: 20170920
  Receipt Date: 20170920
  Transmission Date: 20171128
  Serious: No
  Sender: FDA-Public Use
  Company Number: US-NEUROCRINE BIOSCIENCES INC.-2017NBI00532

PATIENT
  Age: 21 Year
  Sex: Female

DRUGS (5)
  1. TOPAMAX [Concomitant]
     Active Substance: TOPIRAMATE
  2. SEROQUEL XR [Concomitant]
     Active Substance: QUETIAPINE FUMARATE
  3. LAMICTAL [Concomitant]
     Active Substance: LAMOTRIGINE
  4. LEXAPRO [Concomitant]
     Active Substance: ESCITALOPRAM OXALATE
  5. INGREZZA [Suspect]
     Active Substance: VALBENAZINE
     Indication: TARDIVE DYSKINESIA

REACTIONS (3)
  - Heart rate increased [Unknown]
  - Somnolence [Unknown]
  - Fatigue [Unknown]
